FAERS Safety Report 6747975-3 (Version None)
Quarter: 2010Q2

REPORT INFORMATION
  Report Type: 
  Country: None (occurrence: None)
  Receive Date: 20100528
  Receipt Date: 20100520
  Transmission Date: 20101027
  Serious: Yes (Life-Threatening)
  Sender: FDA-Public Use
  Company Number: DE-MERCK-1005ITA00034

PATIENT
  Age: 40 Year
  Sex: Male

DRUGS (10)
  1. COZAAR [Suspect]
     Indication: PROTEINURIA
     Route: 048
     Dates: start: 20071201, end: 20080101
  2. COZAAR [Suspect]
     Route: 048
     Dates: start: 20080101, end: 20080101
  3. COZAAR [Suspect]
     Route: 048
     Dates: start: 20080101, end: 20080101
  4. COZAAR [Suspect]
     Indication: GLOMERULONEPHRITIS
     Route: 048
     Dates: start: 20080101, end: 20080101
  5. COZAAR [Suspect]
     Route: 048
     Dates: start: 20080101, end: 20080101
  6. COZAAR [Suspect]
     Route: 048
     Dates: start: 20071201, end: 20080101
  7. FUROSEMIDE [Concomitant]
     Indication: GLOMERULONEPHRITIS
     Route: 065
  8. PROPRANOLOL HYDROCHLORIDE [Concomitant]
     Route: 065
  9. RAMIPRIL [Suspect]
     Indication: PROTEINURIA
     Route: 048
     Dates: start: 20080101, end: 20080101
  10. RAMIPRIL [Suspect]
     Indication: GLOMERULONEPHRITIS
     Route: 048
     Dates: start: 20080101, end: 20080101

REACTIONS (2)
  - DRUG INTERACTION [None]
  - HEPATIC ENCEPHALOPATHY [None]
